FAERS Safety Report 13493262 (Version 1)
Quarter: 2017Q2

REPORT INFORMATION
  Report Type: Spontaneous
  Country: US (occurrence: US)
  Receive Date: 20170427
  Receipt Date: 20170427
  Transmission Date: 20170830
  Serious: No
  Sender: FDA-Public Use
  Company Number: US-ROCHE-1404891

PATIENT
  Age: 70 Year
  Sex: Male
  Weight: 63.56 kg

DRUGS (2)
  1. HYDROCODONE/ACETAMINOPHEN [Concomitant]
     Active Substance: ACETAMINOPHEN\HYDROCODONE
     Indication: MUSCLE SPASMS
     Dosage: 10/325 AS REQUIRED
     Route: 048
     Dates: start: 201312
  2. ERIVEDGE [Suspect]
     Active Substance: VISMODEGIB
     Indication: PRODUCT USED FOR UNKNOWN INDICATION
     Route: 048
     Dates: start: 20131117, end: 20140505

REACTIONS (3)
  - Muscle spasms [Not Recovered/Not Resolved]
  - Constipation [Recovered/Resolved]
  - Alopecia [Recovered/Resolved]

NARRATIVE: CASE EVENT DATE: 201312
